FAERS Safety Report 6666877-4 (Version None)
Quarter: 2010Q2

REPORT INFORMATION
  Report Type: 
  Country: None (occurrence: None)
  Receive Date: 20100405
  Receipt Date: 20100324
  Transmission Date: 20101027
  Serious: Yes (Hospitalization)
  Sender: FDA-Public Use
  Company Number: JP-JNJFOC-20100304434

PATIENT
  Sex: Male

DRUGS (9)
  1. CRAVIT [Suspect]
     Indication: PNEUMONIA
     Route: 048
  2. MICARDIS [Concomitant]
     Indication: RENAL FAILURE CHRONIC
     Route: 048
  3. MICARDIS [Concomitant]
     Indication: HYPERTENSION
     Route: 048
  4. ACECOL [Concomitant]
     Indication: RENAL FAILURE CHRONIC
     Route: 048
  5. ACECOL [Concomitant]
     Indication: HYPERTENSION
     Route: 048
  6. LASIX [Concomitant]
     Indication: RENAL FAILURE CHRONIC
     Route: 048
  7. LASIX [Concomitant]
     Indication: HYPERTENSION
     Route: 048
  8. URINORM [Concomitant]
     Route: 048
  9. URALYT-U [Concomitant]
     Route: 048

REACTIONS (2)
  - DYSKINESIA [None]
  - OVERDOSE [None]
